FAERS Safety Report 16198336 (Version 1)
Quarter: 2019Q2

REPORT INFORMATION
  Report Type: Spontaneous
  Country: GB (occurrence: GB)
  Receive Date: 20190415
  Receipt Date: 20190415
  Transmission Date: 20190711
  Serious: Yes (Life-Threatening, Hospitalization)
  Sender: FDA-Public Use
  Company Number: GB-JNJFOC-20190421178

PATIENT
  Age: 78 Year
  Sex: Male
  Weight: 56.95 kg

DRUGS (8)
  1. GLYCERYL TRINITRATE [Concomitant]
     Active Substance: NITROGLYCERIN
     Route: 065
  2. GLYCERYL TRINITRATE [Concomitant]
     Active Substance: NITROGLYCERIN
     Route: 065
  3. ABIRATERONE ACETATE. [Suspect]
     Active Substance: ABIRATERONE ACETATE
     Indication: PROSTATE CANCER
     Route: 048
  4. DECAPEPTYL [GONADORELIN] [Concomitant]
     Active Substance: GONADORELIN
     Route: 058
  5. BISOPROLOL [Concomitant]
     Active Substance: BISOPROLOL
     Route: 048
  6. FERROUS FUMARATE [Concomitant]
     Active Substance: FERROUS FUMARATE
     Route: 048
  7. ORAMORPH [Concomitant]
     Active Substance: MORPHINE SULFATE
     Route: 048
  8. PREDNISOLONE. [Concomitant]
     Active Substance: PREDNISOLONE
     Route: 065

REACTIONS (7)
  - Malignant urinary tract neoplasm [Recovering/Resolving]
  - Haematinuria [Recovering/Resolving]
  - Hypokalaemia [Recovering/Resolving]
  - Incorrect dose administered [Unknown]
  - Off label use [Unknown]
  - Angina pectoris [Recovering/Resolving]
  - Acute myocardial infarction [Unknown]

NARRATIVE: CASE EVENT DATE: 20190311
